FAERS Safety Report 23320961 (Version 3)
Quarter: 2024Q3

REPORT INFORMATION
  Report Type: Spontaneous
  Country: DE (occurrence: DE)
  Receive Date: 20231220
  Receipt Date: 20240917
  Transmission Date: 20241016
  Serious: Yes (Hospitalization, Other)
  Sender: JOHNSON AND JOHNSON
  Company Number: DE-JNJFOC-20231233772

PATIENT
  Sex: Male

DRUGS (8)
  1. IBUPROFEN [Suspect]
     Active Substance: IBUPROFEN
     Indication: Axial spondyloarthritis
     Dosage: 200 MG
     Route: 065
  2. IBUPROFEN [Suspect]
     Active Substance: IBUPROFEN
     Dosage: 600 MG, QD
     Route: 065
     Dates: start: 20220815, end: 20220920
  3. IBUPROFEN [Suspect]
     Active Substance: IBUPROFEN
     Dosage: 600 MG, QW (1 DAY PER WEEK)
     Route: 065
     Dates: start: 20201015
  4. IBUPROFEN [Suspect]
     Active Substance: IBUPROFEN
     Dosage: 300 MG, QW (1 DAY PER WEEK)
     Route: 065
  5. COSENTYX [Suspect]
     Active Substance: SECUKINUMAB
     Indication: Ankylosing spondylitis
     Dosage: 300 MG
     Route: 042
  6. COSENTYX [Suspect]
     Active Substance: SECUKINUMAB
     Indication: Axial spondyloarthritis
     Dosage: 150 MG, QMO
     Route: 042
     Dates: start: 20180115, end: 20201215
  7. COSENTYX [Suspect]
     Active Substance: SECUKINUMAB
     Dosage: 150 MG, Q5W (EVERY 5 WEEKS)
     Route: 042
     Dates: start: 20210215
  8. COSENTYX [Suspect]
     Active Substance: SECUKINUMAB
     Dosage: 150 MG, EVERY 4 WEEKS
     Route: 042
     Dates: start: 20220915

REACTIONS (14)
  - Musculoskeletal pain [Recovered/Resolved]
  - Spinal disorder [Recovered/Resolved]
  - Axial spondyloarthritis [Recovered/Resolved]
  - Pelvic pain [Recovered/Resolved]
  - Back pain [Unknown]
  - Condition aggravated [Recovered/Resolved]
  - Arthralgia [Recovered/Resolved]
  - Spinal osteoarthritis [Recovered/Resolved]
  - Colitis ulcerative [Unknown]
  - Musculoskeletal pain [Recovered/Resolved]
  - Ligament sprain [Unknown]
  - Influenza [Unknown]
  - Viral infection [Unknown]
  - Arthralgia [Unknown]

NARRATIVE: CASE EVENT DATE: 20181121
